FAERS Safety Report 14961757 (Version 1)
Quarter: 2018Q2

REPORT INFORMATION
  Report Type: Report from Study
  Country: JP (occurrence: JP)
  Receive Date: 20180601
  Receipt Date: 20180601
  Transmission Date: 20180711
  Serious: Yes (Other)
  Sender: FDA-Public Use
  Company Number: JP-AMGEN-JPNCT2018074338

PATIENT
  Age: 79 Year
  Sex: Male
  Weight: 65.5 kg

DRUGS (1)
  1. DARBEPOETIN ALFA - KHK [Suspect]
     Active Substance: DARBEPOETIN ALFA
     Indication: NEPHROGENIC ANAEMIA
     Dosage: UNK
     Route: 042
     Dates: end: 20171218

REACTIONS (4)
  - Wound [Recovered/Resolved]
  - Nasopharyngitis [Recovered/Resolved]
  - Retinal haemorrhage [Not Recovered/Not Resolved]
  - Contusion [Recovered/Resolved]

NARRATIVE: CASE EVENT DATE: 20170804
